FAERS Safety Report 7418887-7 (Version None)
Quarter: 2011Q2

REPORT INFORMATION
  Report Type: 
  Country: None (occurrence: None)
  Receive Date: 20110415
  Receipt Date: 20110412
  Transmission Date: 20111010
  Serious: No
  Sender: FDA-Public Use
  Company Number: US-PFIZER INC-2011068162

PATIENT
  Sex: Female

DRUGS (3)
  1. SUTENT [Suspect]
     Indication: NEUROENDOCRINE CARCINOMA
     Dosage: UNK
  2. ENALAPRIL MALEATE [Concomitant]
     Indication: HYPERTENSION
  3. PLAVIX [Concomitant]
     Indication: PLATELET ADHESIVENESS INCREASED
     Dosage: UNK

REACTIONS (4)
  - NEUROENDOCRINE CARCINOMA [None]
  - BLOOD PRESSURE INCREASED [None]
  - BLOOD POTASSIUM DECREASED [None]
  - DISEASE PROGRESSION [None]
